FAERS Safety Report 9904799 (Version 1)
Quarter: 2014Q1

REPORT INFORMATION
  Report Type: Report from Study
  Country: FR (occurrence: FR)
  Receive Date: 20140218
  Receipt Date: 20140218
  Transmission Date: 20141002
  Serious: Yes (Other)
  Sender: FDA-Public Use
  Company Number: FR-SA-2014SA016846

PATIENT
  Age: 73 Year
  Sex: Male

DRUGS (1)
  1. CAMPATH [Suspect]
     Indication: B-CELL PROLYMPHOCYTIC LEUKAEMIA
     Route: 065
     Dates: start: 201210

REACTIONS (1)
  - Disease recurrence [Unknown]
